FAERS Safety Report 23521211 (Version 6)
Quarter: 2025Q4

REPORT INFORMATION
  Report Type: Spontaneous
  Country: EU (occurrence: EU)
  Receive Date: 20240214
  Receipt Date: 20251221
  Transmission Date: 20260118
  Serious: Yes (Hospitalization, Other)
  Sender: AMGEN
  Company Number: EU-ROCHE-3017431

PATIENT
  Age: 48 Year
  Sex: Female
  Weight: 58 kg

DRUGS (87)
  1. XGEVA [Suspect]
     Active Substance: DENOSUMAB
     Indication: Product used for unknown indication
     Dosage: UNK
     Route: 065
     Dates: start: 20191011
  2. NEULASTA [Suspect]
     Active Substance: PEGFILGRASTIM
     Indication: Product used for unknown indication
     Dosage: UNK
     Route: 065
     Dates: start: 20220420
  3. HERCEPTIN [Suspect]
     Active Substance: TRASTUZUMAB
     Indication: HER2 positive breast cancer
     Dosage: 1 TIMES IN 3 WEEK
     Route: 040
     Dates: start: 20190724, end: 20190912
  4. HERCEPTIN [Suspect]
     Active Substance: TRASTUZUMAB
     Dosage: 1 TIMES IN 3 WEEK
     Route: 040
     Dates: end: 20230206
  5. TAXOL [Suspect]
     Active Substance: PACLITAXEL
     Indication: HER2 positive breast cancer
     Dosage: MOST RECENT DOSE PRIOR TO AE 12/SEP/2019
     Route: 040
     Dates: start: 20190724, end: 20190912
  6. TYKERB [Suspect]
     Active Substance: LAPATINIB DITOSYLATE
     Indication: HER2 positive breast cancer
     Dosage: MOST RECENT DOSE PRIOR TO THE EVENT: 09/JAN/2021250 MG, 5 TIMES DAILY
     Route: 048
     Dates: start: 20200923, end: 20201228
  7. TYKERB [Suspect]
     Active Substance: LAPATINIB DITOSYLATE
     Dosage: 250 MILLIGRAM, QID, MOST RECENT DOSE PRIOR TO AE 16/DEC/2021, 4 TIMES IN 1 DAY
     Route: 048
     Dates: start: 20210109, end: 20211216
  8. TYKERB [Suspect]
     Active Substance: LAPATINIB DITOSYLATE
     Dosage: MOST RECENT DOSE PRIOR TO AE 16/DEC/2021
     Route: 048
     Dates: start: 20210109, end: 20211216
  9. PERTUZUMAB [Suspect]
     Active Substance: PERTUZUMAB
     Indication: HER2 positive breast cancer
     Dosage: MOST RECENT DOSE PRIOR TO AE 12/SEP/2019
     Route: 040
     Dates: start: 20190724, end: 20190912
  10. XELODA [Suspect]
     Active Substance: CAPECITABINE
     Indication: HER2 positive breast cancer
     Dosage: 500 MILLIGRAM, 500 MG, FREQUENCY: OTHER SIX TIMES A DAY FOR 14 DAYS, 7 DAYS BREAK
     Route: 048
     Dates: start: 20200923, end: 20201220
  11. XELODA [Suspect]
     Active Substance: CAPECITABINE
     Dosage: 500 MILLIGRAM, QID, MOST RECENT DOSE PRIOR TO AE 09/DEC/2021
     Route: 048
     Dates: start: 20210109
  12. XELODA [Suspect]
     Active Substance: CAPECITABINE
     Dosage: MOST RECENT DOSE PRIOR TO AE 09/DEC/2021, 22/MAR/2021
     Route: 048
     Dates: start: 20210109
  13. KADCYLA [Suspect]
     Active Substance: ADO-TRASTUZUMAB EMTANSINE
     Indication: HER2 positive breast cancer
     Dosage: 3.6 MILLIGRAM/KILOGRAM, Q3WK, 1 TIMES IN 3 WEEK
     Route: 040
     Dates: start: 20191014, end: 20200518
  14. KADCYLA [Suspect]
     Active Substance: ADO-TRASTUZUMAB EMTANSINE
     Dosage: MOST RECENT DOSE PRIOR TO AE 03/JUL/2020
     Route: 040
     Dates: start: 20200703, end: 20200703
  15. TRASTUZUMAB DERUXTECAN [Suspect]
     Active Substance: TRASTUZUMAB DERUXTECAN
     Indication: HER2 positive breast cancer
     Dosage: 5.4 MILLIGRAM/KILOGRAM, Q3WK/ MOST RECENT DOSE PRIOR TO AE 31/JAN/20221 TIMES IN 3 WEEK
     Route: 040
     Dates: start: 20220110, end: 20220131
  16. TRASTUZUMAB DERUXTECAN [Suspect]
     Active Substance: TRASTUZUMAB DERUXTECAN
     Dosage: 3.2 MILLIGRAM/KILOGRAM, Q3WK, ONCE IN 3 WEEKS
     Route: 042
     Dates: start: 20220324, end: 20220324
  17. TRASTUZUMAB DERUXTECAN [Suspect]
     Active Substance: TRASTUZUMAB DERUXTECAN
     Dosage: 4.4 MILLIGRAM/KILOGRAM, Q3WK, SINGLE 3 WEEKS
     Route: 042
     Dates: start: 20220419
  18. ADO-TRASTUZUMAB EMTANSINE [Suspect]
     Active Substance: ADO-TRASTUZUMAB EMTANSINE
     Indication: HER2 positive breast cancer
     Dosage: 1 TIMES IN 3 WEEK
     Route: 040
     Dates: start: 20200703, end: 20200703
  19. ADO-TRASTUZUMAB EMTANSINE [Suspect]
     Active Substance: ADO-TRASTUZUMAB EMTANSINE
     Dosage: 1 TIMES IN 3 WEEK
     Route: 040
     Dates: start: 20191014, end: 20200518
  20. TUCATINIB [Suspect]
     Active Substance: TUCATINIB
     Indication: HER2 positive breast cancer
     Dosage: MOST RECENT DOSE PRIOR TO THE EVENT: 22/JAN/2023
     Route: 048
     Dates: start: 20230102
  21. DRONABINOL [Concomitant]
     Active Substance: DRONABINOL
     Dosage: 2 DROP-2 DROP-2 DROP
     Route: 048
     Dates: start: 20190716, end: 20210804
  22. DRONABINOL [Concomitant]
     Active Substance: DRONABINOL
     Dosage: ONGOING = CHECKED
     Route: 048
     Dates: start: 20210705
  23. DEXAMETHASONE [Concomitant]
     Active Substance: DEXAMETHASONE
     Indication: COVID-19
     Dosage: 8 MILLIGRAM
     Route: 040
     Dates: start: 20190704, end: 20190912
  24. DEXAMETHASONE [Concomitant]
     Active Substance: DEXAMETHASONE
     Indication: Intracranial pressure increased
     Dosage: 8 MILLIGRAM
     Route: 048
     Dates: start: 20190705, end: 20190914
  25. DEXAMETHASONE [Concomitant]
     Active Substance: DEXAMETHASONE
     Dosage: 6 MILLIGRAM, QD
     Route: 048
     Dates: start: 20210302, end: 20210304
  26. DEXAMETHASONE [Concomitant]
     Active Substance: DEXAMETHASONE
     Dosage: 8 MILLIGRAM, Q3WK
     Route: 042
     Dates: start: 20220110
  27. DEXAMETHASONE [Concomitant]
     Active Substance: DEXAMETHASONE
     Dosage: UNK
     Route: 065
     Dates: start: 20220111, end: 20220112
  28. DEXAMETHASONE [Concomitant]
     Active Substance: DEXAMETHASONE
     Dosage: UNK
     Route: 065
     Dates: start: 20220113, end: 20220114
  29. DEXAMETHASONE [Concomitant]
     Active Substance: DEXAMETHASONE
     Dosage: UNK
     Route: 065
     Dates: start: 20220115, end: 20220323
  30. DEXAMETHASONE [Concomitant]
     Active Substance: DEXAMETHASONE
     Dosage: 8 MILLIGRAM
     Route: 048
     Dates: start: 20220622
  31. DEXAMETHASONE [Concomitant]
     Active Substance: DEXAMETHASONE
     Dosage: UNK
     Dates: start: 20211229, end: 20220110
  32. ACETAMINOPHEN [Concomitant]
     Active Substance: ACETAMINOPHEN
     Dosage: PRN/ONGOING = CHECKED
     Route: 048
     Dates: start: 20190701
  33. HYDROMORPHONE HYDROCHLORIDE [Concomitant]
     Active Substance: HYDROMORPHONE HYDROCHLORIDE
     Dosage: 2 MILLIGRAM, BID,  2 TIMES IN 1 DAY
     Route: 048
     Dates: start: 20190716, end: 20200927
  34. HYDROMORPHONE HYDROCHLORIDE [Concomitant]
     Active Substance: HYDROMORPHONE HYDROCHLORIDE
     Dosage: PRN
     Route: 048
     Dates: start: 20190716
  35. HYDROMORPHONE HYDROCHLORIDE [Concomitant]
     Active Substance: HYDROMORPHONE HYDROCHLORIDE
     Dosage: 2 TIMES IN 1 DAY
     Route: 048
     Dates: start: 20220207
  36. HYDROMORPHONE HYDROCHLORIDE [Concomitant]
     Active Substance: HYDROMORPHONE HYDROCHLORIDE
     Dosage: 2 TIMES IN 1 DAY
     Route: 048
     Dates: start: 20190716, end: 20200927
  37. ALPRAZOLAM [Concomitant]
     Active Substance: ALPRAZOLAM
     Dosage: PRN
     Route: 048
     Dates: start: 20190715
  38. PANTOPRAZOLE SODIUM [Concomitant]
     Active Substance: PANTOPRAZOLE SODIUM
     Indication: COVID-19
     Dosage: ONGOING = CHECKED
     Route: 048
     Dates: start: 20190701
  39. PANTOPRAZOLE SODIUM [Concomitant]
     Active Substance: PANTOPRAZOLE SODIUM
     Dosage: ONGOING = CHECKED
     Dates: start: 20210302, end: 20210303
  40. PANTOPRAZOLE SODIUM [Concomitant]
     Active Substance: PANTOPRAZOLE SODIUM
     Dosage: ONGOING = CHECKED
     Route: 048
     Dates: start: 20210222, end: 20210302
  41. POLYETHYLENE GLYCOL 4000 [Concomitant]
     Active Substance: POLYETHYLENE GLYCOL 4000
     Dosage: 10 GRAM/ 3 DAYS ONGOING = CHECKED
     Route: 048
     Dates: start: 20190705
  42. CITALOPRAM [Concomitant]
     Active Substance: CITALOPRAM
     Dosage: ONGOING = CHECKED
     Route: 048
     Dates: start: 20190715
  43. SUCRALAN [Concomitant]
     Dosage: PRN
     Route: 048
     Dates: start: 20190701
  44. CEOLAT [Concomitant]
     Dosage: OTHER UP TO 3 X DAILY 10 ML
     Route: 048
     Dates: start: 20190815
  45. ASCORBIC ACID\CALCIUM PHOSPHATE\CHOLECALCIFEROL\CITRIC ACID MONOHYDRAT [Concomitant]
     Active Substance: ASCORBIC ACID\CALCIUM PHOSPHATE\CHOLECALCIFEROL\CITRIC ACID MONOHYDRATE
     Dosage: 500 MILLIGRAM, ONGOING = CHECKED
     Route: 048
     Dates: start: 20190717
  46. ZOFRAN [Concomitant]
     Active Substance: ONDANSETRON HYDROCHLORIDE
     Indication: COVID-19
     Dosage: 8 MILLIGRAM, AS NECESSARY
     Route: 048
     Dates: start: 20190701
  47. ZOFRAN [Concomitant]
     Active Substance: ONDANSETRON HYDROCHLORIDE
     Dosage: 8 MILLIGRAM, AS NECESSARY
     Route: 042
     Dates: start: 20190704, end: 20200703
  48. ZOFRAN [Concomitant]
     Active Substance: ONDANSETRON HYDROCHLORIDE
     Dosage: 8 MILLIGRAM, QD, 2 TIMES IN 1 DAY
     Route: 067
     Dates: start: 20190705, end: 20190914
  49. ZOFRAN [Concomitant]
     Active Substance: ONDANSETRON HYDROCHLORIDE
     Dosage: 4 MILLIGRAM, QD
     Route: 048
     Dates: start: 20210302, end: 20210302
  50. ZOFRAN [Concomitant]
     Active Substance: ONDANSETRON HYDROCHLORIDE
     Dosage: 8 MILLIGRAM, Q3WK, ONGOING = CHECKED1 TIMES IN 3 WEEK
     Route: 042
     Dates: start: 20220110
  51. LENDORM [Concomitant]
     Active Substance: BROTIZOLAM
     Indication: Insomnia
     Dosage: PRN
     Route: 048
     Dates: start: 20211229, end: 20211229
  52. LOPERAMIDE HYDROCHLORIDE [Concomitant]
     Active Substance: LOPERAMIDE HYDROCHLORIDE
     Indication: Diarrhoea
     Dosage: ONGOING = CHECKED
     Route: 048
     Dates: start: 20210215
  53. LOVENOX [Concomitant]
     Active Substance: ENOXAPARIN SODIUM
     Indication: COVID-19
     Dosage: ONGOING = NOT CHECKED
     Route: 030
     Dates: start: 20210302, end: 20210305
  54. LOVENOX [Concomitant]
     Active Substance: ENOXAPARIN SODIUM
     Indication: COVID-19
  55. ACETAMINOPHEN [Concomitant]
     Active Substance: ACETAMINOPHEN
     Indication: COVID-19
     Dosage: PRN (AS NEEDED)
     Route: 048
     Dates: start: 20210302, end: 20210303
  56. ACETAMINOPHEN [Concomitant]
     Active Substance: ACETAMINOPHEN
     Indication: COVID-19
  57. ACETAMINOPHEN [Concomitant]
     Active Substance: ACETAMINOPHEN
     Indication: COVID-19
  58. VALACYCLOVIR HYDROCHLORIDE [Concomitant]
     Active Substance: VALACYCLOVIR HYDROCHLORIDE
     Dosage: 500 MILLIGRAM, QD
     Route: 048
     Dates: start: 20190716, end: 20191011
  59. AMOXICILLIN AND CLAVULANATE POTASSIUM [Concomitant]
     Active Substance: AMOXICILLIN\CLAVULANATE POTASSIUM
     Indication: Influenza
     Dosage: 875 MILLIGRAM, BID, 2 TIMES IN 1 DAY
     Route: 048
     Dates: start: 20200527, end: 20200602
  60. OLANZAPINE [Concomitant]
     Active Substance: OLANZAPINE
     Dosage: OTHER 0-0-1/2
     Route: 048
     Dates: start: 20190904, end: 20200926
  61. OLANZAPINE [Concomitant]
     Active Substance: OLANZAPINE
     Dosage: OTHER 0-0-1/2
     Route: 048
     Dates: start: 20190821, end: 20190904
  62. TRAZODONE HYDROCHLORIDE [Concomitant]
     Active Substance: TRAZODONE HYDROCHLORIDE
     Dosage: 150 MILLIGRAM, QD
     Route: 048
     Dates: start: 20190716, end: 20200926
  63. EUTHYROX [Concomitant]
     Active Substance: LEVOTHYROXINE SODIUM
     Dosage: 75 MICROGRAM, QD
     Route: 048
     Dates: start: 201906, end: 201906
  64. EUTHYROX [Concomitant]
     Active Substance: LEVOTHYROXINE SODIUM
     Dosage: 50 DOSAGE FORM, QD
     Route: 048
     Dates: start: 20190703, end: 20200929
  65. EUTHYROX [Concomitant]
     Active Substance: LEVOTHYROXINE SODIUM
     Dosage: 25 MICROGRAM, QD
     Route: 048
     Dates: start: 20200930, end: 20210108
  66. EUTHYROX [Concomitant]
     Active Substance: LEVOTHYROXINE SODIUM
     Route: 048
     Dates: end: 201906
  67. NEURONTIN [Concomitant]
     Active Substance: GABAPENTIN
     Dosage: 300 MILLIGRAM, BID, 2 TIMES IN 1 DAY
     Route: 048
     Dates: start: 201908, end: 201908
  68. NEURONTIN [Concomitant]
     Active Substance: GABAPENTIN
     Dosage: 2 TIMES IN 1 DAY
     Route: 048
     Dates: start: 201908, end: 201908
  69. URSODIOL [Concomitant]
     Active Substance: URSODIOL
     Indication: Gamma-glutamyltransferase increased
     Dosage: UNK
     Dates: start: 20220401
  70. EMEND [Concomitant]
     Active Substance: APREPITANT
     Dosage: 80 MILLIGRAM
     Route: 048
     Dates: start: 20220621
  71. EMEND [Concomitant]
     Active Substance: APREPITANT
     Dosage: ONGOING = CHECKED
     Route: 048
     Dates: start: 20220621
  72. PFIZER-BIONTECH COVID-19 VACCINE [Concomitant]
     Active Substance: TOZINAMERAN
     Dosage: UNK
     Dates: start: 20220125, end: 20220125
  73. UNASYN [Concomitant]
     Active Substance: AMPICILLIN SODIUM\SULBACTAM SODIUM
     Dosage: UNK
     Dates: start: 20220919
  74. ORNITHINE ASPARTATE [Concomitant]
     Active Substance: ORNITHINE ASPARTATE
  75. ORNITHINE ASPARTATE [Concomitant]
     Active Substance: ORNITHINE ASPARTATE
     Dosage: 2 TIMES IN 1 DAY
     Dates: start: 20220401, end: 20220419
  76. FERINJECT [Concomitant]
     Active Substance: FERRIC CARBOXYMALTOSE
     Indication: Iron deficiency anaemia
     Dosage: UNK
     Dates: start: 20220114
  77. LEVOTHYROXINE SODIUM [Concomitant]
     Active Substance: LEVOTHYROXINE SODIUM
  78. LEVOTHYROXINE SODIUM [Concomitant]
     Active Substance: LEVOTHYROXINE SODIUM
  79. Ferretab [Concomitant]
  80. Ferretab [Concomitant]
  81. Ferretab [Concomitant]
  82. LACTULOSE [Concomitant]
     Active Substance: LACTULOSE
  83. LACTULOSE [Concomitant]
     Active Substance: LACTULOSE
  84. LACTULOSE [Concomitant]
     Active Substance: LACTULOSE
  85. FILGRASTIM [Concomitant]
     Active Substance: FILGRASTIM
     Dosage: 2 DAY
     Dates: start: 20220420, end: 20220421
  86. AMOXICILLIN\CLAVULANATE POTASSIUM [Concomitant]
     Active Substance: AMOXICILLIN\CLAVULANATE POTASSIUM
     Indication: Influenza
     Dosage: 2 TIMES IN 1 DAY
     Route: 048
     Dates: start: 20200527, end: 20200602
  87. AMOXICILLIN\CLAVULANATE POTASSIUM [Concomitant]
     Active Substance: AMOXICILLIN\CLAVULANATE POTASSIUM
     Indication: Influenza
     Dosage: 875 MILLIGRAM, Q12H
     Dates: start: 20200527, end: 20200602

REACTIONS (16)
  - Vascular device infection [Recovered/Resolved]
  - COVID-19 [Recovered/Resolved]
  - Intracranial pressure increased [Recovered/Resolved]
  - Iron deficiency anaemia [Recovered/Resolved]
  - Gamma-glutamyltransferase increased [Recovered/Resolved]
  - Insomnia [Not Recovered/Not Resolved]
  - Neutropenia [Recovered/Resolved]
  - Thrombocytopenia [Not Recovered/Not Resolved]
  - COVID-19 [Recovered/Resolved]
  - COVID-19 [Recovered/Resolved]
  - General physical health deterioration [Recovered/Resolved]
  - Blood bilirubin increased [Recovered/Resolved]
  - Aphthous ulcer [Recovered/Resolved]
  - Asthenia [Recovered/Resolved]
  - Blood bilirubin increased [Recovered/Resolved]
  - Diarrhoea [Recovered/Resolved]

NARRATIVE: CASE EVENT DATE: 20201228
